FAERS Safety Report 20920238 (Version 1)
Quarter: 2022Q2

REPORT INFORMATION
  Report Type: Spontaneous
  Country: US (occurrence: US)
  Receive Date: 20220606
  Receipt Date: 20220606
  Transmission Date: 20220721
  Serious: No
  Sender: FDA-Public Use
  Company Number: US-PFIZER INC-202200792934

PATIENT
  Age: 86 Year
  Sex: Male
  Weight: 82.1 kg

DRUGS (1)
  1. PAXLOVID [Suspect]
     Active Substance: NIRMATRELVIR\RITONAVIR
     Indication: COVID-19 treatment
     Dosage: 3 DF, 2X/DAY (2 TABLETS OF ONE AND 1 TABLET OF THE OTHER TWICE A DAY, IN THE MORNING AND EVENING)
     Dates: start: 20220601

REACTIONS (5)
  - Muscle spasms [Recovered/Resolved]
  - Dysgeusia [Recovered/Resolved]
  - Diarrhoea [Unknown]
  - Off label use [Unknown]
  - Product use issue [Unknown]

NARRATIVE: CASE EVENT DATE: 20220601
